FAERS Safety Report 13512558 (Version 11)
Quarter: 2019Q2

REPORT INFORMATION
  Report Type: Report from Study
  Country: IE (occurrence: IE)
  Receive Date: 20170504
  Receipt Date: 20190607
  Transmission Date: 20190711
  Serious: Yes (Hospitalization)
  Sender: FDA-Public Use
  Company Number: PHHO2017IE007381

PATIENT
  Age: 73 Year
  Sex: Female
  Weight: 76.9 kg

DRUGS (11)
  1. DABRAFENIB [Suspect]
     Active Substance: DABRAFENIB
     Dosage: 150 MG, QD
     Route: 048
     Dates: start: 20130916, end: 20130916
  2. DABRAFENIB [Suspect]
     Active Substance: DABRAFENIB
     Dosage: 200 MG, QD
     Route: 048
     Dates: start: 20131210, end: 20170308
  3. TRAMETINIB [Suspect]
     Active Substance: TRAMETINIB
     Dosage: 2 MG, QD
     Route: 048
     Dates: start: 20130603, end: 20130916
  4. DABRAFENIB [Suspect]
     Active Substance: DABRAFENIB
     Indication: MALIGNANT MELANOMA
     Dosage: 300 MG, QD
     Route: 048
     Dates: start: 20130207, end: 20190531
  5. DABRAFENIB [Suspect]
     Active Substance: DABRAFENIB
     Dosage: 300 MG, QD
     Route: 048
     Dates: start: 20130603, end: 20130915
  6. TRAMETINIB [Suspect]
     Active Substance: TRAMETINIB
     Dosage: 1.5 MG, QD
     Route: 048
     Dates: start: 20131019, end: 20131208
  7. DABRAFENIB [Suspect]
     Active Substance: DABRAFENIB
     Dosage: 100 MG, QD
     Route: 048
     Dates: start: 20131209, end: 20131209
  8. TRAMETINIB [Suspect]
     Active Substance: TRAMETINIB
     Dosage: 1.5 MG, QD
     Route: 048
     Dates: start: 20131210, end: 20170308
  9. DABRAFENIB [Suspect]
     Active Substance: DABRAFENIB
     Dosage: 200 MG, QD
     Route: 048
     Dates: start: 20131019, end: 20131208
  10. DABRAFENIB [Suspect]
     Active Substance: DABRAFENIB
     Dosage: 150 MG, QD
     Route: 048
     Dates: start: 20130601, end: 20130602
  11. TRAMETINIB [Suspect]
     Active Substance: TRAMETINIB
     Indication: MALIGNANT MELANOMA
     Dosage: 2 MG, QD
     Route: 048
     Dates: start: 20130207, end: 20130601

REACTIONS (1)
  - Arthritis [Recovered/Resolved]

NARRATIVE: CASE EVENT DATE: 20170414
